FAERS Safety Report 7604330-1 (Version None)
Quarter: 2011Q3

REPORT INFORMATION
  Report Type: 
  Country: None (occurrence: None)
  Receive Date: 20110712
  Receipt Date: 20110708
  Transmission Date: 20111222
  Serious: Yes (Hospitalization)
  Sender: FDA-Public Use
  Company Number: PHHO2011IT11050

PATIENT
  Sex: Male
  Weight: 84 kg

DRUGS (3)
  1. CIPROFLOXACIN [Concomitant]
     Dosage: UNK
     Dates: start: 20110615
  2. AUGMENTIN '125' [Concomitant]
     Dosage: UNK
     Dates: start: 20110615
  3. AFINITOR [Suspect]
     Indication: METASTATIC RENAL CELL CARCINOMA
     Dosage: 5 MG, QD
     Route: 048
     Dates: start: 20100603, end: 20110706

REACTIONS (1)
  - BRONCHOSPASM [None]
